FAERS Safety Report 13603201 (Version 3)
Quarter: 2018Q3

REPORT INFORMATION
  Report Type: Report from Study
  Country: US (occurrence: US)
  Receive Date: 20170601
  Receipt Date: 20180927
  Transmission Date: 20181010
  Serious: Yes (Hospitalization)
  Sender: FDA-Public Use
  Company Number: US-ACTELION-A-US2017-153297

PATIENT
  Age: 58 Year
  Sex: Female
  Weight: 37.64 kg

DRUGS (4)
  1. VELETRI [Suspect]
     Active Substance: EPOPROSTENOL
     Indication: PULMONARY ARTERIAL HYPERTENSION
     Dosage: 32.66 NG/KG, PER MIN
     Route: 042
  2. OPSUMIT [Suspect]
     Active Substance: MACITENTAN
     Indication: PULMONARY ARTERIAL HYPERTENSION
     Dosage: 10 MG, QD
     Route: 048
     Dates: start: 20150130
  3. VELETRI [Suspect]
     Active Substance: EPOPROSTENOL
     Dosage: 32.66 NG/KG, PER MIN
     Route: 042
  4. ADCIRCA [Concomitant]
     Active Substance: TADALAFIL

REACTIONS (9)
  - Anaemia [Unknown]
  - Haemorrhage [Recovered/Resolved]
  - Device dislocation [Unknown]
  - Hypoalbuminaemia [Unknown]
  - Haemoglobin decreased [Unknown]
  - Blood potassium decreased [Unknown]
  - Gastritis [Unknown]
  - Asthenia [Unknown]
  - Upper gastrointestinal haemorrhage [Unknown]
